FAERS Safety Report 9995493 (Version 1)
Quarter: 2014Q1

REPORT INFORMATION
  Report Type: Spontaneous
  Country: FR (occurrence: FR)
  Receive Date: 20140311
  Receipt Date: 20140311
  Transmission Date: 20141002
  Serious: Yes (Death, Other)
  Sender: FDA-Public Use
  Company Number: FR-UCBSA-113833

PATIENT
  Age: 66 Year
  Sex: Male

DRUGS (19)
  1. KEPPRA [Suspect]
     Indication: EPILEPSY
     Dosage: 100 MG/ML
     Route: 042
     Dates: start: 20131214, end: 20131227
  2. KEPPRA [Suspect]
     Indication: EPILEPSY
     Route: 048
     Dates: start: 20131227, end: 20140112
  3. TRILEPTAL [Suspect]
     Indication: EPILEPSY
     Route: 048
     Dates: start: 20131214, end: 20140109
  4. ROCEPHINE [Suspect]
     Indication: SEPSIS
     Dosage: DAILY DOSE: 1G
     Route: 042
     Dates: start: 20131227, end: 20140108
  5. OFLOCET [Suspect]
     Indication: SEPSIS
     Route: 048
     Dates: start: 20131224, end: 20140109
  6. URBANYL [Suspect]
     Indication: EPILEPSY
     Dosage: DAILY DOSE: 25 MG, 10MG-5MG-10MG
     Route: 048
     Dates: start: 20131219, end: 20140112
  7. MOPRAL [Suspect]
     Dosage: DAILY DOSE: 20 MG
     Route: 048
     Dates: start: 20131221, end: 20140112
  8. ZELITREX [Suspect]
     Route: 048
     Dates: start: 20131228, end: 20140109
  9. SOLUMEDROL [Concomitant]
     Dosage: 120 MG
     Dates: start: 20131213
  10. SOLUMEDROL [Concomitant]
     Dosage: DAILY DOSE: 80 MG
     Dates: start: 20140103, end: 201401
  11. SOLUMEDROL [Concomitant]
     Dosage: DAILY DOSE: 60 MG
     Dates: start: 20140105, end: 20140109
  12. SOLUMEDROL [Concomitant]
     Dosage: DAILY DOSE: 120 MG
     Route: 042
     Dates: start: 20140112
  13. SOLUPRED [Concomitant]
     Dates: start: 20140109
  14. BRICANYL [Concomitant]
     Dates: start: 20131219, end: 20140109
  15. ATROVENT [Concomitant]
     Dates: start: 20131219, end: 20140109
  16. PHENYTOIN [Concomitant]
     Indication: EPILEPSY
     Dates: start: 20131212
  17. RIVOTRIL [Concomitant]
     Indication: EPILEPSY
     Dates: start: 20131213, end: 20131220
  18. RIVOTRIL [Concomitant]
     Indication: EPILEPSY
     Route: 042
     Dates: start: 20140114
  19. AUGMENTIN [Concomitant]
     Indication: SEPSIS
     Route: 042
     Dates: start: 20131222, end: 20131227

REACTIONS (1)
  - Toxic epidermal necrolysis [Fatal]
